FAERS Safety Report 10731844 (Version 1)
Quarter: 2015Q1

REPORT INFORMATION
  Report Type: Spontaneous
  Country: IT (occurrence: IT)
  Receive Date: 20150123
  Receipt Date: 20150123
  Transmission Date: 20150721
  Serious: Yes (Other)
  Sender: FDA-Public Use
  Company Number: IT-AUROBINDO-AUR-APL-2015-00398

PATIENT
  Age: 16 Year
  Sex: Male

DRUGS (3)
  1. OLANZAPINE 10MG [Suspect]
     Active Substance: OLANZAPINE
     Indication: OPPOSITIONAL DEFIANT DISORDER
     Dosage: 5 MG, DAILY
     Route: 065
  2. OLANZAPINE 10MG [Suspect]
     Active Substance: OLANZAPINE
     Indication: CONDUCT DISORDER
     Dosage: 10 MG, DAILY
     Route: 065
  3. OLANZAPINE 10MG [Suspect]
     Active Substance: OLANZAPINE
     Dosage: 7.5 MG, DAILY
     Route: 065

REACTIONS (5)
  - Aspartate aminotransferase increased [Unknown]
  - Aldolase increased [Unknown]
  - Blood creatine phosphokinase increased [Unknown]
  - Blood lactate dehydrogenase increased [Unknown]
  - Creatine urine increased [Unknown]
